FAERS Safety Report 23415863 (Version 1)
Quarter: 2024Q1

REPORT INFORMATION
  Report Type: Spontaneous
  Country: US (occurrence: US)
  Receive Date: 20240118
  Receipt Date: 20240118
  Transmission Date: 20240409
  Serious: Yes (Hospitalization, Other)
  Sender: FDA-Public Use
  Company Number: US-GRAVITIPHARMA-GRA-2401-US-LIT-0002

PATIENT
  Age: 29 Year
  Sex: Female

DRUGS (6)
  1. BUPROPION HYDROCHLORIDE EXTENDED RELEASE [Suspect]
     Active Substance: BUPROPION HYDROCHLORIDE
     Indication: Product used for unknown indication
  2. ALPRAZOLAM [Suspect]
     Active Substance: ALPRAZOLAM
     Indication: Product used for unknown indication
  3. LISDEXAMFETAMINE [Suspect]
     Active Substance: LISDEXAMFETAMINE
     Indication: Product used for unknown indication
  4. AMIODARONE [Concomitant]
     Active Substance: AMIODARONE
     Indication: Product used for unknown indication
  5. SODIUM BICARBONATE [Concomitant]
     Active Substance: SODIUM BICARBONATE
     Indication: Ventricular tachycardia
  6. SODIUM BICARBONATE [Concomitant]
     Active Substance: SODIUM BICARBONATE
     Indication: Hypotension

REACTIONS (4)
  - Overdose [Unknown]
  - Toxicity to various agents [Unknown]
  - Cardiogenic shock [Unknown]
  - Status epilepticus [Unknown]
